FAERS Safety Report 18473242 (Version 1)
Quarter: 2020Q4

REPORT INFORMATION
  Report Type: Spontaneous
  Country: US (occurrence: US)
  Receive Date: 20201106
  Receipt Date: 20201106
  Transmission Date: 20210114
  Serious: Yes (Hospitalization, Other)
  Sender: FDA-Public Use
  Company Number: US-ACCORD-207369

PATIENT
  Age: 83 Year
  Sex: Male

DRUGS (1)
  1. METHOTREXATE. [Suspect]
     Active Substance: METHOTREXATE
     Indication: RHEUMATOID ARTHRITIS

REACTIONS (6)
  - Pneumothorax [Unknown]
  - Hypercalcaemia [Unknown]
  - Pneumomediastinum [Unknown]
  - Diffuse large B-cell lymphoma [Unknown]
  - Constipation [Unknown]
  - Bacterial infection [Unknown]
